FAERS Safety Report 19108873 (Version 1)
Quarter: 2021Q2

REPORT INFORMATION
  Report Type: Spontaneous
  Country: CA (occurrence: CA)
  Receive Date: 20210408
  Receipt Date: 20210408
  Transmission Date: 20210717
  Serious: Yes (Other)
  Sender: FDA-Public Use
  Company Number: CA-INSUD PHARMA-2103CA00372

PATIENT

DRUGS (2)
  1. TESTOSTERONE. [Suspect]
     Active Substance: TESTOSTERONE
     Dosage: INJECTABLE TESTOSTERONE UNTIL A YEAR BEFORE PRESENTATION
  2. TESTOSTERONE. [Suspect]
     Active Substance: TESTOSTERONE
     Indication: TRANSGENDER HORMONAL THERAPY
     Dosage: 1% GEL
     Route: 062

REACTIONS (10)
  - Nausea [Unknown]
  - Urinary retention [Unknown]
  - Ovarian endometrioid carcinoma [Unknown]
  - Abdominal tenderness [Unknown]
  - Fallopian tube necrosis [Recovered/Resolved]
  - Tumour compression [Recovered/Resolved]
  - Reproductive tract procedural complication [Recovered/Resolved]
  - Pelvic pain [Unknown]
  - Abdominal distension [Unknown]
  - Abdominal pain [Unknown]
